FAERS Safety Report 12523430 (Version 1)
Quarter: 2016Q3

REPORT INFORMATION
  Report Type: Spontaneous
  Country: US (occurrence: US)
  Receive Date: 20160703
  Receipt Date: 20160703
  Transmission Date: 20161109
  Serious: Yes (Other)
  Sender: FDA-Public Use
  Company Number: US-BEH-2016070675

PATIENT
  Sex: Female

DRUGS (1)
  1. PRIVIGEN [Suspect]
     Active Substance: HUMAN IMMUNOGLOBULIN G
     Indication: IMMUNODEFICIENCY COMMON VARIABLE
     Dosage: 25 G, EVERY 6 WEEKS
     Route: 042
     Dates: start: 20120809

REACTIONS (4)
  - Respiratory tract infection [Unknown]
  - Upper respiratory tract infection [Unknown]
  - Drug ineffective [Unknown]
  - Urinary tract infection [Unknown]
